FAERS Safety Report 21114677 (Version 1)
Quarter: 2022Q3

REPORT INFORMATION
  Report Type: Spontaneous
  Country: US (occurrence: US)
  Receive Date: 20220721
  Receipt Date: 20220721
  Transmission Date: 20221027
  Serious: No
  Sender: FDA-Public Use
  Company Number: US-MEDEXUS PHARMA, INC.-2021MED00276

PATIENT
  Sex: Female
  Weight: 117.91 kg

DRUGS (1)
  1. RASUVO [Suspect]
     Active Substance: METHOTREXATE SODIUM
     Indication: Systemic lupus erythematosus
     Dosage: 25 MG, INJECTED IN UPPER THIGH (ROTATE BETWEEN RIGHT AND LEFT), 1X/WEEK ON TUESDAYS
     Dates: start: 2020

REACTIONS (8)
  - Blister [Unknown]
  - Musculoskeletal disorder [Recovering/Resolving]
  - Accidental exposure to product [Recovered/Resolved]
  - Product dose omission issue [Recovered/Resolved]
  - Off label use [Not Recovered/Not Resolved]
  - Device defective [Unknown]
  - Skin burning sensation [Recovered/Resolved]
  - Myalgia [Recovering/Resolving]

NARRATIVE: CASE EVENT DATE: 20200101
